FAERS Safety Report 6307358-7 (Version None)
Quarter: 2009Q3

REPORT INFORMATION
  Report Type: 
  Country: None (occurrence: None)
  Receive Date: 20090807
  Receipt Date: 20090521
  Transmission Date: 20100115
  Serious: Yes (Other)
  Sender: FDA-Public Use
  Company Number: US-JNJFOC-20090505685

PATIENT
  Age: 3 Month
  Weight: 5.4432 kg

DRUGS (2)
  1. IBUPROFEN [Suspect]
     Indication: PYREXIA
     Dosage: 50 MG, 1 IN 6  HOUR, ORAL
     Route: 048
     Dates: start: 20090516, end: 20090517
  2. ACETAMINOPHEN [Suspect]
     Indication: PYREXIA
     Dosage: 80 MG, 1 IN 6 HOUR, ORAL
     Route: 048
     Dates: start: 20090516, end: 20090517

REACTIONS (1)
  - HAEMATOCHEZIA [None]
